FAERS Safety Report 16676957 (Version 1)
Quarter: 2019Q3

REPORT INFORMATION
  Report Type: Spontaneous
  Country: DE (occurrence: DE)
  Receive Date: 20190807
  Receipt Date: 20190807
  Transmission Date: 20191004
  Serious: Yes (Other)
  Sender: FDA-Public Use
  Company Number: DE-SUN PHARMACEUTICAL INDUSTRIES LTD-2019RR-216639

PATIENT
  Age: 81 Year
  Sex: Male

DRUGS (2)
  1. VESIKUR [Suspect]
     Active Substance: SOLIFENACIN SUCCINATE
     Indication: NOCTURIA
     Dosage: 5 MG, QD
     Route: 048
     Dates: start: 20190602
  2. TAMSULOSIN [Suspect]
     Active Substance: TAMSULOSIN
     Indication: PRODUCT USED FOR UNKNOWN INDICATION
     Dosage: 0.4 MG, UNK
     Route: 048

REACTIONS (5)
  - Product use in unapproved indication [Unknown]
  - Polyuria [Unknown]
  - Pollakiuria [Unknown]
  - Bladder discomfort [Unknown]
  - Urinary retention [Unknown]

NARRATIVE: CASE EVENT DATE: 20190602
